FAERS Safety Report 6185444-2 (Version None)
Quarter: 2009Q2

REPORT INFORMATION
  Report Type: 
  Country: None (occurrence: None)
  Receive Date: 20090511
  Receipt Date: 20090505
  Transmission Date: 20091009
  Serious: Yes (Hospitalization)
  Sender: FDA-Public Use
  Company Number: DK-ASTRAZENECA-2009SE00891

PATIENT
  Age: 15659 Day
  Sex: Female
  Weight: 95 kg

DRUGS (4)
  1. CRESTOR [Suspect]
     Indication: HYPERCHOLESTEROLAEMIA
     Route: 048
     Dates: start: 20080912, end: 20081113
  2. IMOVANE [Concomitant]
     Route: 048
  3. CENTYL WITH POTASSIUM CHLORIDE [Concomitant]
     Dosage: 1 TABLET DAILY
     Route: 048
  4. HEXALID [Concomitant]
     Route: 048

REACTIONS (7)
  - ABDOMINAL PAIN [None]
  - DIZZINESS [None]
  - FATIGUE [None]
  - NAUSEA [None]
  - PALPITATIONS [None]
  - VISUAL IMPAIRMENT [None]
  - VOMITING [None]
